FAERS Safety Report 25224417 (Version 1)
Quarter: 2025Q2

REPORT INFORMATION
  Report Type: Spontaneous
  Country: US (occurrence: None)
  Receive Date: 20250421
  Receipt Date: 20250421
  Transmission Date: 20250716
  Serious: Yes (Hospitalization)
  Sender: FDA-CTU
  Company Number: None

PATIENT
  Age: 88 Year
  Sex: Female

DRUGS (1)
  1. NUPLAZID [Suspect]
     Active Substance: PIMAVANSERIN TARTRATE
     Indication: Parkinson^s disease
     Dosage: 34 MG DAILY ORAL ?
     Route: 048
     Dates: start: 20240207

REACTIONS (2)
  - Urinary tract infection [None]
  - Therapy interrupted [None]

NARRATIVE: CASE EVENT DATE: 20250412
